FAERS Safety Report 22154372 (Version 1)
Quarter: 2023Q1

REPORT INFORMATION
  Report Type: Spontaneous
  Country: US (occurrence: US)
  Receive Date: 20230330
  Receipt Date: 20230330
  Transmission Date: 20230417
  Serious: No
  Sender: FDA-Public Use
  Company Number: US-LEO Pharma-350721

PATIENT
  Age: 61 Year
  Sex: Male

DRUGS (1)
  1. ADBRY [Suspect]
     Active Substance: TRALOKINUMAB-LDRM
     Indication: Dermatitis atopic
     Dosage: DOSAGE: INJECT 300MG (2 PREFILLED SYRINGES) EVERY OTHER WEEK
     Route: 058
     Dates: start: 20230315

REACTIONS (1)
  - Eczema [Unknown]
